FAERS Safety Report 10974239 (Version 1)
Quarter: 2015Q2

REPORT INFORMATION
  Report Type: Spontaneous
  Country: US (occurrence: US)
  Receive Date: 20150401
  Receipt Date: 20150401
  Transmission Date: 20150821
  Serious: Yes (Hospitalization, Other)
  Sender: FDA-Public Use
  Company Number: US-PFIZER INC-2015109340

PATIENT
  Age: 55 Year
  Sex: Male

DRUGS (3)
  1. LYRICA [Suspect]
     Active Substance: PREGABALIN
     Dosage: 100MG QD
  2. LYRICA [Suspect]
     Active Substance: PREGABALIN
     Indication: NEURALGIA
     Dosage: 75 MG, UNK
  3. METHADONE [Suspect]
     Active Substance: METHADONE HYDROCHLORIDE
     Indication: NEURALGIA
     Dosage: UNK

REACTIONS (7)
  - Swelling face [Recovering/Resolving]
  - Skin disorder [Unknown]
  - Chapped lips [Unknown]
  - Infection [Unknown]
  - Hypersensitivity [Unknown]
  - Lip swelling [Recovering/Resolving]
  - Local swelling [Recovering/Resolving]
